FAERS Safety Report 9581816 (Version 1)
Quarter: 2013Q4

REPORT INFORMATION
  Report Type: Spontaneous
  Country: BR (occurrence: BR)
  Receive Date: 20131002
  Receipt Date: 20131002
  Transmission Date: 20140711
  Serious: Yes (Hospitalization)
  Sender: FDA-Public Use
  Company Number: BR-PFIZER INC-2013279399

PATIENT
  Age: 82 Year
  Sex: Female

DRUGS (5)
  1. DETRUSITOL LA [Suspect]
     Dosage: 1 CAPSULE (4 MG), 1X/DAY
     Route: 048
  2. ALOIS [Concomitant]
  3. ANCORON [Concomitant]
  4. VYTORIN [Concomitant]
  5. EXELON [Concomitant]
     Dosage: UNK

REACTIONS (1)
  - Musculoskeletal discomfort [Unknown]
